FAERS Safety Report 6295708-X (Version None)
Quarter: 2009Q3

REPORT INFORMATION
  Report Type: 
  Country: None (occurrence: None)
  Receive Date: 20090803
  Receipt Date: 20090803
  Transmission Date: 20100115
  Serious: Yes (Hospitalization)
  Sender: FDA-Public Use
  Company Number: None

PATIENT
  Sex: Male
  Weight: 74.7 kg

DRUGS (2)
  1. XELODA [Suspect]
     Dosage: 41100 MG
  2. ELOXATIN [Suspect]
     Dosage: 291 MG

REACTIONS (6)
  - COUGH [None]
  - MIDDLE INSOMNIA [None]
  - MYALGIA [None]
  - PYREXIA [None]
  - RASH [None]
  - RASH PRURITIC [None]
